FAERS Safety Report 9130779 (Version 1)
Quarter: 2013Q1

REPORT INFORMATION
  Report Type: Spontaneous
  Country: US (occurrence: US)
  Receive Date: 20130301
  Receipt Date: 20130301
  Transmission Date: 20140127
  Serious: Yes (Other)
  Sender: FDA-Public Use
  Company Number: PHEH2013US002399

PATIENT
  Sex: Female
  Weight: 85 kg

DRUGS (8)
  1. AFINITOR [Suspect]
     Indication: BREAST CANCER METASTATIC
     Dosage: 5 MG, QD
     Route: 048
  2. ATENOLOL [Concomitant]
     Dosage: 50 MG, QD
     Route: 048
  3. KLOR-CON [Concomitant]
     Dosage: 10 MEQ, QD
     Route: 048
  4. LOSARTAN POTASSIUM [Concomitant]
     Dosage: 50 MG, QD
     Route: 048
  5. METFORMIN HCL [Concomitant]
     Route: 048
  6. PRAVASTATIN SODIUM [Concomitant]
     Route: 048
  7. TAMOXIFEN CITRATE [Concomitant]
     Dosage: 20 MG, BID
     Route: 048
  8. LISINOPRIL [Concomitant]
     Route: 048

REACTIONS (8)
  - Fall [Unknown]
  - Contusion [Unknown]
  - Haematoma [Recovering/Resolving]
  - Musculoskeletal chest pain [Unknown]
  - Eye disorder [Unknown]
  - Gait disturbance [Unknown]
  - Back pain [Not Recovered/Not Resolved]
  - Arthralgia [Unknown]
